FAERS Safety Report 9628610 (Version 1)
Quarter: 2013Q4

REPORT INFORMATION
  Report Type: Report from Study
  Country: CA (occurrence: CA)
  Receive Date: 20131017
  Receipt Date: 20131017
  Transmission Date: 20140711
  Serious: Yes (Hospitalization)
  Sender: FDA-Public Use
  Company Number: CA-JNJFOC-20131006946

PATIENT
  Age: 56 Year
  Sex: Female
  Weight: 44.4 kg

DRUGS (6)
  1. REMICADE [Suspect]
     Indication: CROHN^S DISEASE
     Route: 042
     Dates: start: 20130927
  2. REMICADE [Suspect]
     Indication: CROHN^S DISEASE
     Route: 042
     Dates: start: 201208
  3. AMLODIPINE [Concomitant]
     Route: 065
  4. BECLOMETHASONE [Concomitant]
     Route: 065
  5. ENTOCORT [Concomitant]
     Route: 065
  6. SALBUTAMOL [Concomitant]
     Route: 065

REACTIONS (1)
  - Obstruction [Unknown]
